FAERS Safety Report 24357070 (Version 1)
Quarter: 2024Q3

REPORT INFORMATION
  Report Type: Spontaneous
  Country: AR (occurrence: AR)
  Receive Date: 20240924
  Receipt Date: 20240924
  Transmission Date: 20241017
  Serious: Yes (Other)
  Sender: MYLAN
  Company Number: AR-MYLANLABS-2024M1082069

PATIENT
  Age: 28 Year
  Sex: Male

DRUGS (1)
  1. CLOZAPINE [Suspect]
     Active Substance: CLOZAPINE
     Indication: Product used for unknown indication
     Dosage: 300 MILLIGRAM (APPROXIMATE START DATE 15-AUG-2024)
     Route: 065
     Dates: start: 202408, end: 20240918

REACTIONS (9)
  - Intellectual disability [Unknown]
  - Blindness [Unknown]
  - Neutropenia [Not Recovered/Not Resolved]
  - Mean cell haemoglobin increased [Recovering/Resolving]
  - Basophil count increased [Unknown]
  - Lymphocyte count increased [Recovering/Resolving]
  - Monocyte count increased [Unknown]
  - Red blood cell count decreased [Unknown]
  - Mean cell volume increased [Not Recovered/Not Resolved]

NARRATIVE: CASE EVENT DATE: 20240815
